FAERS Safety Report 15737112 (Version 2)
Quarter: 2020Q1

REPORT INFORMATION
  Report Type: Report from Study
  Country: US (occurrence: US)
  Receive Date: 20181218
  Receipt Date: 20200106
  Transmission Date: 20200409
  Serious: No
  Sender: FDA-Public Use
  Company Number: US-SA-2018SA343200

PATIENT
  Age: 50 Year
  Sex: Female

DRUGS (3)
  1. DUPILUMAB [Suspect]
     Active Substance: DUPILUMAB
     Indication: DERMATITIS ATOPIC
     Dosage: UNK, 1X
     Route: 058
     Dates: start: 2017, end: 2017
  2. DUPILUMAB [Suspect]
     Active Substance: DUPILUMAB
     Dosage: 300 MG, QOW
     Route: 058
     Dates: start: 20180112
  3. EUCRISA [Concomitant]
     Active Substance: CRISABOROLE

REACTIONS (2)
  - Product storage error [Unknown]
  - Weight increased [Unknown]

NARRATIVE: CASE EVENT DATE: 20181210
